FAERS Safety Report 22240025 (Version 1)
Quarter: 2023Q2

REPORT INFORMATION
  Report Type: Spontaneous
  Country: CN (occurrence: None)
  Receive Date: 20230421
  Receipt Date: 20230421
  Transmission Date: 20230721
  Serious: Yes (Hospitalization)
  Sender: FDA-Public Use
  Company Number: 2023A086943

PATIENT
  Age: 67 Year
  Sex: Female

DRUGS (6)
  1. TAGRISSO [Suspect]
     Active Substance: OSIMERTINIB
     Indication: Non-small cell lung cancer
     Route: 048
     Dates: start: 2017
  2. TAGRISSO [Suspect]
     Active Substance: OSIMERTINIB
     Indication: Non-small cell lung cancer
     Route: 048
     Dates: start: 2020
  3. TAGRISSO [Suspect]
     Active Substance: OSIMERTINIB
     Indication: Non-small cell lung cancer
     Dosage: ONE TABLET
     Route: 048
     Dates: start: 202203
  4. ERLOTINIB [Concomitant]
     Active Substance: ERLOTINIB
     Dates: start: 202208
  5. AUMOLERTINIB [Concomitant]
     Active Substance: AUMOLERTINIB
     Dates: start: 202208
  6. FURMONERTINIB [Concomitant]
     Dates: start: 202208

REACTIONS (1)
  - Drug resistance [Not Recovered/Not Resolved]

NARRATIVE: CASE EVENT DATE: 20220801
